FAERS Safety Report 8822462 (Version 1)
Quarter: 2012Q4

REPORT INFORMATION
  Report Type: 
  Country: FR (occurrence: FR)
  Receive Date: 20121003
  Receipt Date: 20121003
  Transmission Date: 20130627
  Serious: Yes (Hospitalization)
  Sender: FDA-Public Use
  Company Number: FR-ASTELLAS-2012EU007149

PATIENT
  Age: 59 Year
  Sex: Male

DRUGS (8)
  1. PROGRAF [Suspect]
     Indication: HEART TRANSPLANT
     Dosage: 2.5 mg, bid
     Route: 048
     Dates: start: 20120705
  2. PROGRAF [Interacting]
     Dosage: 1.5 mg, bid
     Route: 065
  3. PROGRAF [Interacting]
     Dosage: 0.5 mg, UID/QD
     Route: 065
     Dates: start: 20120710
  4. PROGRAF [Interacting]
     Dosage: 0.5 mg, bid
     Route: 065
     Dates: start: 20120712
  5. ROCEPHINE [Interacting]
     Indication: PNEUMONIA
     Dosage: 1 g, Unknown/D
     Route: 042
     Dates: start: 201206, end: 20120712
  6. OFLOCET [Interacting]
     Indication: PNEUMONIA
     Dosage: UNK
     Route: 048
     Dates: start: 201206, end: 20120707
  7. OFLOCET [Interacting]
     Dosage: 400 mg, Unknown/D
     Route: 065
     Dates: end: 20120712
  8. CELLCEPT                           /01275102/ [Concomitant]
     Dosage: UNK

REACTIONS (2)
  - Overdose [Recovered/Resolved]
  - Drug interaction [Recovered/Resolved]
